FAERS Safety Report 6475412-5 (Version None)
Quarter: 2009Q4

REPORT INFORMATION
  Report Type: 
  Country: None (occurrence: None)
  Receive Date: 20091204
  Receipt Date: 20091127
  Transmission Date: 20100525
  Serious: Yes (Other)
  Sender: FDA-Public Use
  Company Number: PL-AMGEN-UK367851

PATIENT
  Sex: Female

DRUGS (2)
  1. ROMIPLOSTIM [Suspect]
     Indication: IDIOPATHIC THROMBOCYTOPENIC PURPURA
     Route: 058
     Dates: start: 20090602, end: 20090930
  2. ROMIPLOSTIM - STUDY PROCEDURE [Suspect]

REACTIONS (3)
  - HEADACHE [None]
  - PARAESTHESIA [None]
  - VISUAL IMPAIRMENT [None]
